FAERS Safety Report 6844090-5 (Version None)
Quarter: 2010Q3

REPORT INFORMATION
  Report Type: 
  Country: None (occurrence: None)
  Receive Date: 20100714
  Receipt Date: 20100714
  Transmission Date: 20110219
  Serious: No
  Sender: FDA-Public Use
  Company Number: None

PATIENT
  Age: 53 Year
  Sex: Female
  Weight: 52.1637 kg

DRUGS (1)
  1. NEXIUM [Suspect]
     Dosage: 40MG 2X DAILY
     Dates: start: 20100615, end: 20100619

REACTIONS (4)
  - DECREASED APPETITE [None]
  - HEADACHE [None]
  - MYALGIA [None]
  - NAUSEA [None]
